FAERS Safety Report 25627379 (Version 1)
Quarter: 2025Q3

REPORT INFORMATION
  Report Type: Spontaneous
  Country: EU (occurrence: EU)
  Receive Date: 20250731
  Receipt Date: 20250731
  Transmission Date: 20251021
  Serious: Yes (Other)
  Sender: UCB
  Company Number: EU-UCBSA-2025046118

PATIENT
  Age: 0 Year
  Sex: Male
  Weight: 2.926 kg

DRUGS (3)
  1. BRIVIACT [Suspect]
     Active Substance: BRIVARACETAM
     Indication: Epilepsy
     Dosage: 100 MILLIGRAM, 2X/DAY (BID)
     Route: 064
     Dates: start: 20250206
  2. OXCARBAZEPINE [Concomitant]
     Active Substance: OXCARBAZEPINE
     Indication: Epilepsy
     Route: 064
     Dates: start: 2004
  3. LAMOTRIGINE [Concomitant]
     Active Substance: LAMOTRIGINE
     Indication: Epilepsy
     Route: 064
     Dates: start: 201104

REACTIONS (2)
  - Premature baby [Unknown]
  - Maternal exposure during pregnancy [Unknown]

NARRATIVE: CASE EVENT DATE: 20250206
